FAERS Safety Report 7803867-X (Version None)
Quarter: 2011Q4

REPORT INFORMATION
  Report Type: 
  Country: None (occurrence: None)
  Receive Date: 20111010
  Receipt Date: 20111004
  Transmission Date: 20120403
  Serious: Yes (Other)
  Sender: FDA-Public Use
  Company Number: JP-PFIZER INC-2011236923

PATIENT
  Age: 76 Year
  Sex: Female

DRUGS (5)
  1. LYRICA [Suspect]
     Indication: SPINAL DEFORMITY
     Dosage: 150 MG/DAY
     Route: 048
     Dates: start: 20110502, end: 20110926
  2. DEKASOFT [Concomitant]
     Dosage: UNK
     Route: 048
     Dates: start: 19850903
  3. VIVIANT [Concomitant]
     Dosage: 20 MG/DAY
     Route: 048
     Dates: start: 20110226, end: 20111003
  4. PERSANTIN [Concomitant]
     Dosage: UNK
     Route: 048
     Dates: start: 19850903
  5. PRAVASTATIN SODIUM [Concomitant]
     Indication: HYPERLIPIDAEMIA
     Dosage: 10 MG/DAY
     Route: 048
     Dates: start: 19950501

REACTIONS (6)
  - HEPATIC FUNCTION ABNORMAL [None]
  - GAMMA-GLUTAMYLTRANSFERASE INCREASED [None]
  - ALANINE AMINOTRANSFERASE INCREASED [None]
  - ASPARTATE AMINOTRANSFERASE INCREASED [None]
  - CHROMATURIA [None]
  - FEELING ABNORMAL [None]
